FAERS Safety Report 20174192 (Version 2)
Quarter: 2022Q1

REPORT INFORMATION
  Report Type: Report from Study
  Country: US (occurrence: None)
  Receive Date: 20211213
  Receipt Date: 20220107
  Transmission Date: 20220423
  Serious: Yes (Death, Hospitalization)
  Sender: FDA-Public Use
  Company Number: US-ROCHE-2946953

PATIENT
  Age: 71 Year
  Sex: Male
  Weight: 78.9 kg

DRUGS (6)
  1. PLACEBO [Suspect]
     Active Substance: UNSPECIFIED INGREDIENT
     Indication: Colorectal cancer metastatic
     Dosage: ON 02/JAN/2018, HE RECEIVED MOST RECENT DOSE OF ATEZOLIZUMAB PRIOR TO SAE
     Route: 042
     Dates: start: 20171120
  2. BEVACIZUMAB [Suspect]
     Active Substance: BEVACIZUMAB
     Indication: Colorectal cancer metastatic
     Dosage: ON 02/JAN/2018, HE RECEIVED MOST RECENT DOSE OF BEVACIZUMAB PRIOR TO SAE
     Route: 042
     Dates: start: 20171120
  3. CAPECITABINE [Suspect]
     Active Substance: CAPECITABINE
     Indication: Colorectal cancer metastatic
     Dosage: ON 13/JAN/2018, HE RECEIVED MOST RECENT DOSE OF CAPACITABINE PRIOR TO SAE
     Route: 048
     Dates: start: 20171120
  4. NORVASC [Concomitant]
     Active Substance: AMLODIPINE BESYLATE
  5. COLACE [Concomitant]
     Active Substance: DOCUSATE SODIUM
  6. PRILOSEC [Concomitant]
     Active Substance: OMEPRAZOLE MAGNESIUM

REACTIONS (2)
  - Neoplasm progression [Fatal]
  - Blood urine present [Recovered/Resolved]

NARRATIVE: CASE EVENT DATE: 20180114
